FAERS Safety Report 9627107 (Version 2)
Quarter: 2013Q4

REPORT INFORMATION
  Report Type: Report from Study
  Country: AR (occurrence: AR)
  Receive Date: 20131016
  Receipt Date: 20131018
  Transmission Date: 20140711
  Serious: Yes (Other)
  Sender: FDA-Public Use
  Company Number: PHHY2013AR116057

PATIENT
  Sex: Female

DRUGS (3)
  1. EXFORGE [Suspect]
     Indication: BLOOD PRESSURE MANAGEMENT
     Dosage: 1 DF, (320/10 MG) PER DAY
     Route: 048
     Dates: start: 201303
  2. EXFORGE [Suspect]
     Dosage: 1 DF, (320/10 MG) EVERY OTHER DAY
     Route: 048
  3. DIURETICS [Concomitant]
     Dosage: UNK UKN, UNK

REACTIONS (8)
  - Erysipelas [Recovering/Resolving]
  - Inflammation [Recovering/Resolving]
  - Erythema [Recovering/Resolving]
  - Pain [Recovering/Resolving]
  - Dry skin [Recovering/Resolving]
  - Hernia pain [Recovering/Resolving]
  - Hypertension [Recovering/Resolving]
  - Pyrexia [Recovering/Resolving]
